FAERS Safety Report 22106766 (Version 1)
Quarter: 2023Q1

REPORT INFORMATION
  Report Type: Spontaneous
  Country: US (occurrence: US)
  Receive Date: 20230317
  Receipt Date: 20230317
  Transmission Date: 20230418
  Serious: No
  Sender: FDA-Public Use
  Company Number: US-SA-SAC20230308000010

PATIENT
  Age: 45 Year
  Sex: Male
  Weight: 82.54 kg

DRUGS (6)
  1. DUPIXENT [Suspect]
     Active Substance: DUPILUMAB
     Indication: Dermatitis atopic
     Dosage: 300 MG, QOW
     Route: 058
     Dates: start: 2019
  2. PROGESTERONE [Concomitant]
     Active Substance: PROGESTERONE
  3. CLOBETASOL [Concomitant]
     Active Substance: CLOBETASOL
  4. VITAMIN D NOS [Concomitant]
     Active Substance: VITAMIN D NOS
  5. OMEPRAZOLE [Concomitant]
     Active Substance: OMEPRAZOLE
  6. CYMBALTA [Concomitant]
     Active Substance: DULOXETINE HYDROCHLORIDE

REACTIONS (4)
  - Skin wound [Not Recovered/Not Resolved]
  - Eyelid exfoliation [Not Recovered/Not Resolved]
  - Skin exfoliation [Not Recovered/Not Resolved]
  - Dermatitis atopic [Not Recovered/Not Resolved]

NARRATIVE: CASE EVENT DATE: 20230201
